FAERS Safety Report 8444232-4 (Version None)
Quarter: 2012Q2

REPORT INFORMATION
  Report Type: 
  Country: None (occurrence: None)
  Receive Date: 20120618
  Receipt Date: 20120430
  Transmission Date: 20120825
  Serious: No
  Sender: FDA-Public Use
  Company Number: US-GLAXOSMITHKLINE-A0975726A

PATIENT
  Sex: Female

DRUGS (2)
  1. NO CONCURRENT MEDICATION [Concomitant]
  2. CLOBETASOL PROPIONATE [Suspect]
     Indication: PSORIASIS
     Route: 061
     Dates: start: 20100101

REACTIONS (3)
  - HEADACHE [None]
  - EXPIRED DRUG ADMINISTERED [None]
  - DRUG ADMINISTRATION ERROR [None]
